FAERS Safety Report 8235944-6 (Version None)
Quarter: 2012Q1

REPORT INFORMATION
  Report Type: 
  Country: None (occurrence: None)
  Receive Date: 20120326
  Receipt Date: 20120323
  Transmission Date: 20120608
  Serious: Yes (Hospitalization, Other)
  Sender: FDA-Public Use
  Company Number: LU-MERCK-1203BEL00008

PATIENT
  Age: 68 Year
  Sex: Female

DRUGS (1)
  1. VYTORIN [Suspect]
     Route: 048
     Dates: end: 20120301

REACTIONS (3)
  - PAIN IN EXTREMITY [None]
  - TRANSIENT ISCHAEMIC ATTACK [None]
  - RHABDOMYOLYSIS [None]
